FAERS Safety Report 12731860 (Version 1)
Quarter: 2016Q3

REPORT INFORMATION
  Report Type: Spontaneous
  Country: US (occurrence: US)
  Receive Date: 20160912
  Receipt Date: 20160912
  Transmission Date: 20161109
  Serious: No
  Sender: FDA-Public Use
  Company Number: None

PATIENT
  Age: 51 Year
  Sex: Female

DRUGS (19)
  1. EPIPEN [Concomitant]
     Active Substance: EPINEPHRINE
  2. ADVAIR DISKUS [Concomitant]
     Active Substance: FLUTICASONE PROPIONATE\SALMETEROL XINAFOATE
  3. ZOKOR [Concomitant]
  4. ATORVASTATIN CALCIUM 80 MG TAB PFIZER [Suspect]
     Active Substance: ATORVASTATIN CALCIUM
     Indication: BLOOD CHOLESTEROL INCREASED
     Dosage: 80 MG ONE PILL DAILY BY MOUTH
     Route: 048
     Dates: start: 20140812, end: 201508
  5. ATORVASTATIN CALCIUM 80 MG TAB PFIZER [Suspect]
     Active Substance: ATORVASTATIN CALCIUM
     Indication: HYPERTENSION
     Dosage: 80 MG ONE PILL DAILY BY MOUTH
     Route: 048
     Dates: start: 20140812, end: 201508
  6. MONTELUKAST [Concomitant]
     Active Substance: MONTELUKAST SODIUM
  7. FUROSEMIDE. [Concomitant]
     Active Substance: FUROSEMIDE
  8. FLUNISOLIDE. [Concomitant]
     Active Substance: FLUNISOLIDE
  9. OMEPRAZOLE. [Concomitant]
     Active Substance: OMEPRAZOLE
  10. SPIRIVA [Concomitant]
     Active Substance: TIOTROPIUM BROMIDE MONOHYDRATE
  11. CALCIUM [Concomitant]
     Active Substance: CALCIUM
  12. MONTELUSKAST SODIUM [Concomitant]
  13. TIOTROPIUM BROMIDE [Concomitant]
     Active Substance: TIOTROPIUM BROMIDE
  14. BENADRYL [Concomitant]
     Active Substance: DIPHENHYDRAMINE HYDROCHLORIDE
  15. LISINOPRIL. [Concomitant]
     Active Substance: LISINOPRIL
  16. FLUTICASONE PROPIONATE. [Concomitant]
     Active Substance: FLUTICASONE PROPIONATE
  17. ALBUTEROL. [Concomitant]
     Active Substance: ALBUTEROL
  18. LORATADINE. [Concomitant]
     Active Substance: LORATADINE
  19. PREDNISONE. [Concomitant]
     Active Substance: PREDNISONE

REACTIONS (4)
  - Hepatic cirrhosis [None]
  - Pain [None]
  - Haemorrhage [None]
  - Muscle spasms [None]

NARRATIVE: CASE EVENT DATE: 20140825
